FAERS Safety Report 17485273 (Version 1)
Quarter: 2020Q1

REPORT INFORMATION
  Report Type: Report from Study
  Country: US (occurrence: US)
  Receive Date: 20200302
  Receipt Date: 20200302
  Transmission Date: 20200409
  Serious: Yes (Hospitalization, Other)
  Sender: FDA-Public Use
  Company Number: US-ACTELION-A-US2019-188882

PATIENT
  Age: 58 Year
  Sex: Female

DRUGS (25)
  1. SILDENAFIL. [Concomitant]
     Active Substance: SILDENAFIL
  2. LIDOCAINE. [Concomitant]
     Active Substance: LIDOCAINE
  3. DICLOFENAC [Concomitant]
     Active Substance: DICLOFENAC
  4. SPIRONOLACTONE. [Concomitant]
     Active Substance: SPIRONOLACTONE
  5. ADVAIR HFA [Concomitant]
     Active Substance: FLUTICASONE PROPIONATE\SALMETEROL XINAFOATE
  6. PANTOPRAZOLE [Concomitant]
     Active Substance: PANTOPRAZOLE
  7. LIPITOR [Concomitant]
     Active Substance: ATORVASTATIN CALCIUM
  8. DUONEB [Concomitant]
     Active Substance: ALBUTEROL SULFATE\IPRATROPIUM BROMIDE
  9. HUMULIN NOS [Concomitant]
     Active Substance: INSULIN HUMAN
  10. NICODERM CQ [Concomitant]
     Active Substance: NICOTINE
  11. HYDROCHLOROTHIAZIDE. [Concomitant]
     Active Substance: HYDROCHLOROTHIAZIDE
  12. NARCAN [Concomitant]
     Active Substance: NALOXONE HYDROCHLORIDE
  13. TYVASO [Concomitant]
     Active Substance: TREPROSTINIL
  14. CYCLOBENZAPRINE. [Concomitant]
     Active Substance: CYCLOBENZAPRINE
  15. VENTOLIN HFA [Concomitant]
     Active Substance: ALBUTEROL SULFATE
  16. VARENICLINE [Concomitant]
     Active Substance: VARENICLINE
  17. BUMEX [Concomitant]
     Active Substance: BUMETANIDE
  18. NORCO [Concomitant]
     Active Substance: ACETAMINOPHEN\HYDROCODONE BITARTRATE
  19. TRAMADOL. [Concomitant]
     Active Substance: TRAMADOL
  20. MELATONIN [Concomitant]
     Active Substance: MELATONIN
  21. GABAPENTIN. [Concomitant]
     Active Substance: GABAPENTIN
  22. ASPIRIN. [Concomitant]
     Active Substance: ASPIRIN
  23. OPSUMIT [Suspect]
     Active Substance: MACITENTAN
     Indication: PULMONARY HYPERTENSION
     Dosage: 10 MG, QD
     Route: 048
     Dates: start: 20190202
  24. OXYGEN. [Concomitant]
     Active Substance: OXYGEN
     Dosage: 6 L, PER MIN
     Dates: start: 20190920
  25. LOSARTAN. [Concomitant]
     Active Substance: LOSARTAN

REACTIONS (14)
  - Dyspnoea [Recovering/Resolving]
  - Muscle spasms [Unknown]
  - Productive cough [Unknown]
  - Aortic arteriosclerosis [Unknown]
  - Dyspnoea exertional [Recovering/Resolving]
  - Pneumonia [Unknown]
  - Bronchitis [Unknown]
  - Delirium [Unknown]
  - Pulmonary oedema [Unknown]
  - Neck pain [Unknown]
  - Condition aggravated [Unknown]
  - Vasodilatation [Unknown]
  - Hilar lymphadenopathy [Unknown]
  - Sputum discoloured [Unknown]

NARRATIVE: CASE EVENT DATE: 20190320
